FAERS Safety Report 19025277 (Version 2)
Quarter: 2021Q1

REPORT INFORMATION
  Report Type: Report from Study
  Country: NL (occurrence: NL)
  Receive Date: 20210318
  Receipt Date: 20210324
  Transmission Date: 20210420
  Serious: No
  Sender: FDA-Public Use
  Company Number: NL-MYLANLABS-2021M1014718

PATIENT
  Sex: Female

DRUGS (1)
  1. GLATIRAMEERACETAAT MYLAN 40 MG/ML [Suspect]
     Active Substance: GLATIRAMER ACETATE
     Indication: RELAPSING-REMITTING MULTIPLE SCLEROSIS
     Dosage: UNK, 3XW
     Route: 058
     Dates: start: 20210204

REACTIONS (4)
  - Vulvovaginal mycotic infection [Recovering/Resolving]
  - Oral herpes [Recovered/Resolved]
  - Palpitations [Not Recovered/Not Resolved]
  - Sensory disturbance [Not Recovered/Not Resolved]
